FAERS Safety Report 10965901 (Version 9)
Quarter: 2016Q2

REPORT INFORMATION
  Report Type: Report from Study
  Country: GB (occurrence: GB)
  Receive Date: 20150330
  Receipt Date: 20160407
  Transmission Date: 20160815
  Serious: Yes (Hospitalization)
  Sender: FDA-Public Use
  Company Number: GB-ROCHE-1417054

PATIENT
  Age: 83 Year
  Sex: Male
  Weight: 68.9 kg

DRUGS (13)
  1. LOSARTAN. [Concomitant]
     Active Substance: LOSARTAN
     Route: 065
  2. NYSTATIN. [Concomitant]
     Active Substance: NYSTATIN
     Route: 065
  3. PARACETAMOL [Concomitant]
     Active Substance: ACETAMINOPHEN
     Route: 065
  4. BEVACIZUMAB [Suspect]
     Active Substance: BEVACIZUMAB
     Indication: COLORECTAL CANCER METASTATIC
     Dosage: LAST DOSE PRIOR TO FIRST EPISODE SAE 14/MAY/2014,
     Route: 042
     Dates: start: 20140514
  5. BEVACIZUMAB [Suspect]
     Active Substance: BEVACIZUMAB
     Dosage: LAST DOSE PRIOR TO SECOND EPISODE OF SAE 12/JUN/2014.
     Route: 042
     Dates: start: 20140612, end: 20140709
  6. IRINOTECAN [Suspect]
     Active Substance: IRINOTECAN
     Indication: PRODUCT USED FOR UNKNOWN INDICATION
     Route: 065
  7. ALLOPURINOL. [Concomitant]
     Active Substance: ALLOPURINOL
     Route: 065
  8. GOSERELIN [Concomitant]
     Active Substance: GOSERELIN
     Route: 065
  9. DOMPERIDONE [Concomitant]
     Active Substance: DOMPERIDONE
     Route: 065
     Dates: start: 2014
  10. PARACETAMOL [Concomitant]
     Active Substance: ACETAMINOPHEN
     Route: 065
  11. BEVACIZUMAB [Suspect]
     Active Substance: BEVACIZUMAB
     Route: 042
     Dates: start: 20140709
  12. BEVACIZUMAB [Suspect]
     Active Substance: BEVACIZUMAB
     Dosage: 325, 350, 500, 525
     Route: 042
     Dates: end: 20140821
  13. ENOXAPARIN [Concomitant]
     Active Substance: ENOXAPARIN
     Route: 065
     Dates: start: 20140626

REACTIONS (4)
  - Diarrhoea [Recovered/Resolved]
  - Dehydration [Recovered/Resolved]
  - Neutropenia [Recovered/Resolved]
  - Proteinuria [Recovered/Resolved]

NARRATIVE: CASE EVENT DATE: 20140514
